FAERS Safety Report 5209781-0 (Version None)
Quarter: 2006Q4

REPORT INFORMATION
  Report Type: 
  Country: None (occurrence: None)
  Receive Date: 20061107
  Receipt Date: 20060818
  Transmission Date: 20070319
  Serious: No
  Sender: FDA-Public Use
  Company Number: IPX00005

PATIENT
  Age: 14 Year
  Sex: Female
  Weight: 33 kg

DRUGS (1)
  1. IPLEX [Suspect]
     Indication: INSULIN-LIKE GROWTH FACTOR DECREASED
     Dosage: 16.5 MG/DAY/SC
     Route: 058
     Dates: start: 20060817, end: 20060817

REACTIONS (2)
  - ABDOMINAL PAIN [None]
  - INJECTION SITE ERYTHEMA [None]
